FAERS Safety Report 19178880 (Version 1)
Quarter: 2021Q2

REPORT INFORMATION
  Report Type: Spontaneous
  Country: US (occurrence: US)
  Receive Date: 20210426
  Receipt Date: 20210426
  Transmission Date: 20210717
  Serious: No
  Sender: FDA-Public Use
  Company Number: US-AMGEN-USASP2021059244

PATIENT
  Sex: Male

DRUGS (3)
  1. HUMIRA [Suspect]
     Active Substance: ADALIMUMAB
     Indication: ANKYLOSING SPONDYLITIS
     Dosage: 40 MILLIGRAM, 1 IN 2 WEEK
     Route: 058
     Dates: start: 2011
  2. ENBREL [Suspect]
     Active Substance: ETANERCEPT
     Indication: PRODUCT USED FOR UNKNOWN INDICATION
     Dosage: UNK
     Route: 065
  3. HUMIRA [Suspect]
     Active Substance: ADALIMUMAB
     Dosage: 40 MILLIGRAM, 1 IN 2 WEEK
     Route: 058
     Dates: start: 20210404

REACTIONS (6)
  - Joint range of motion decreased [Unknown]
  - Arthralgia [Unknown]
  - Mobility decreased [Unknown]
  - Injection site pruritus [Unknown]
  - Dysstasia [Unknown]
  - Loss of personal independence in daily activities [Unknown]
